FAERS Safety Report 5049758-1 (Version None)
Quarter: 2006Q3

REPORT INFORMATION
  Report Type: 
  Country: None (occurrence: None)
  Receive Date: 20060706
  Receipt Date: 20060623
  Transmission Date: 20061208
  Serious: Yes (Hospitalization)
  Sender: FDA-Public Use
  Company Number: 2006PV011508

PATIENT
  Age: 61 Year
  Sex: Female
  Weight: 74.8435 kg

DRUGS (7)
  1. BYETTA [Suspect]
     Indication: DIABETES MELLITUS NON-INSULIN-DEPENDENT
     Dosage: 5 MCG; BID; SC
     Route: 058
     Dates: start: 20051029, end: 20051102
  2. NOVOLIN 70/30 [Concomitant]
  3. GLUCOPHAGE XR [Concomitant]
  4. AVANDIA [Concomitant]
  5. GLYBURIDE [Concomitant]
  6. THYROID TAB [Concomitant]
  7. LIPITOR [Concomitant]

REACTIONS (7)
  - ACIDOSIS [None]
  - ANION GAP INCREASED [None]
  - DEHYDRATION [None]
  - HAEMOCONCENTRATION [None]
  - HYPERGLYCAEMIA [None]
  - HYPERNATRAEMIA [None]
  - VOMITING [None]
